FAERS Safety Report 20339993 (Version 2)
Quarter: 2022Q1

REPORT INFORMATION
  Report Type: Spontaneous
  Country: ES (occurrence: ES)
  Receive Date: 20220117
  Receipt Date: 20220310
  Transmission Date: 20220423
  Serious: Yes (Other)
  Sender: FDA-Public Use
  Company Number: ES-ABBVIE-21K-144-4068274-00

PATIENT
  Age: 46 Year
  Sex: Male

DRUGS (5)
  1. CLONAZEPAM [Suspect]
     Active Substance: CLONAZEPAM
     Indication: Product used for unknown indication
     Dosage: UNK
     Route: 065
     Dates: start: 2021
  2. CARBIDOPA\LEVODOPA [Suspect]
     Active Substance: CARBIDOPA\LEVODOPA
     Indication: Parkinson^s disease
     Dosage: UNK ( (INTRACATHETER)
     Route: 050
     Dates: start: 20210421, end: 202111
  3. CARBIDOPA\LEVODOPA [Suspect]
     Active Substance: CARBIDOPA\LEVODOPA
     Indication: Parkinson^s disease
     Dosage: CD TO 9.5ML / H AND THE ED TO 9.9ML, ON THE PUMP FOR 24 HOURS (INTRACATHETER)
     Route: 050
     Dates: start: 202111, end: 202112
  4. CARBIDOPA\LEVODOPA [Suspect]
     Active Substance: CARBIDOPA\LEVODOPA
     Indication: Parkinson^s disease
     Dosage: UNK (DOSE INCREASED)  (INTRACATHETER)
     Route: 050
     Dates: start: 202112
  5. SINEMET [Suspect]
     Active Substance: CARBIDOPA\LEVODOPA
     Indication: Product used for unknown indication
     Dosage: UNK
     Route: 065
     Dates: start: 2021

REACTIONS (20)
  - Cognitive disorder [Unknown]
  - Speech disorder [Not Recovered/Not Resolved]
  - On and off phenomenon [Unknown]
  - Dysphagia [Not Recovered/Not Resolved]
  - Vomiting [Recovering/Resolving]
  - Asthenia [Unknown]
  - Abdominal pain [Recovering/Resolving]
  - Decreased appetite [Unknown]
  - Agitation [Not Recovered/Not Resolved]
  - Fatigue [Not Recovered/Not Resolved]
  - Disorientation [Recovering/Resolving]
  - Disease progression [Unknown]
  - Weight decreased [Unknown]
  - Dyskinesia [Not Recovered/Not Resolved]
  - Condition aggravated [Unknown]
  - Discouragement [Unknown]
  - Aggression [Recovered/Resolved]
  - Freezing phenomenon [Unknown]
  - Gait inability [Unknown]
  - Emotional distress [Recovered/Resolved]

NARRATIVE: CASE EVENT DATE: 20210101
